FAERS Safety Report 14901955 (Version 1)
Quarter: 2018Q2

REPORT INFORMATION
  Report Type: Spontaneous
  Country: US (occurrence: US)
  Receive Date: 20180516
  Receipt Date: 20180516
  Transmission Date: 20180711
  Serious: No
  Sender: FDA-Public Use
  Company Number: US-BEH-2018090617

PATIENT
  Sex: Female
  Weight: 63.49 kg

DRUGS (27)
  1. LEVAQUIN [Concomitant]
     Active Substance: LEVOFLOXACIN
  2. SPIRIVA [Concomitant]
     Active Substance: TIOTROPIUM BROMIDE MONOHYDRATE
  3. PROBIOTIC                          /06395501/ [Concomitant]
     Active Substance: BIFIDOBACTERIUM ANIMALIS LACTIS
  4. HIZENTRA [Suspect]
     Active Substance: HUMAN IMMUNOGLOBULIN G
     Indication: IMMUNODEFICIENCY COMMON VARIABLE
     Dosage: 12 G, QW
     Route: 058
     Dates: start: 20171004
  5. DIPHENHYDRAMINE. [Concomitant]
     Active Substance: DIPHENHYDRAMINE
  6. ELIQUIS [Concomitant]
     Active Substance: APIXABAN
  7. PREDNISONE. [Concomitant]
     Active Substance: PREDNISONE
  8. CICLOPIROX. [Concomitant]
     Active Substance: CICLOPIROX
  9. THEOPHYLLINE ANHYDROUS. [Concomitant]
     Active Substance: THEOPHYLLINE ANHYDROUS
  10. POTASSIUM [Concomitant]
     Active Substance: POTASSIUM
  11. CALCIUM [Concomitant]
     Active Substance: CALCIUM
  12. FLUTICASONE. [Concomitant]
     Active Substance: FLUTICASONE
  13. ALBUTEROL                          /00139501/ [Concomitant]
     Active Substance: ALBUTEROL
  14. ADVAIR HFA [Concomitant]
     Active Substance: FLUTICASONE PROPIONATE\SALMETEROL XINAFOATE
  15. LIDOCAINE. [Concomitant]
     Active Substance: LIDOCAINE
  16. EPINEPHRINE. [Concomitant]
     Active Substance: EPINEPHRINE
  17. CARAFATE [Concomitant]
     Active Substance: SUCRALFATE
  18. OXYCODONE AND ACETAMINOPHEN [Concomitant]
     Active Substance: ACETAMINOPHEN\OXYCODONE HYDROCHLORIDE
  19. ACETAMINOPHEN. [Concomitant]
     Active Substance: ACETAMINOPHEN
  20. ZOFRAN [Concomitant]
     Active Substance: ONDANSETRON HYDROCHLORIDE
  21. BUMETANIDE. [Concomitant]
     Active Substance: BUMETANIDE
  22. HIZENTRA [Suspect]
     Active Substance: HUMAN IMMUNOGLOBULIN G
     Dosage: UNK
     Route: 058
  23. VITAMIN D3 [Concomitant]
     Active Substance: CHOLECALCIFEROL
  24. HIZENTRA [Suspect]
     Active Substance: HUMAN IMMUNOGLOBULIN G
     Dosage: UNK
     Route: 058
  25. FORTEO [Concomitant]
     Active Substance: TERIPARATIDE
  26. SYNTHROID [Concomitant]
     Active Substance: LEVOTHYROXINE SODIUM
  27. IRON [Concomitant]
     Active Substance: IRON

REACTIONS (2)
  - Contusion [Unknown]
  - Infusion site haemorrhage [Unknown]
